FAERS Safety Report 16944906 (Version 2)
Quarter: 2019Q4

REPORT INFORMATION
  Report Type: Spontaneous
  Country: US (occurrence: US)
  Receive Date: 20191022
  Receipt Date: 20191212
  Transmission Date: 20200122
  Serious: Yes (Other)
  Sender: FDA-Public Use
  Company Number: US-PFIZER INC-2019453176

PATIENT
  Age: 58 Year
  Sex: Female
  Weight: 72.56 kg

DRUGS (4)
  1. VERZENIO [Concomitant]
     Active Substance: ABEMACICLIB
     Dosage: UNK
     Dates: start: 20171130, end: 20180430
  2. XGEVA [Concomitant]
     Active Substance: DENOSUMAB
     Dosage: UNK
     Dates: start: 20120928, end: 20190601
  3. FASLODEX [Concomitant]
     Active Substance: FULVESTRANT
     Dosage: UNK
     Dates: start: 20171130, end: 20180430
  4. IBRANCE [Suspect]
     Active Substance: PALBOCICLIB
     Indication: BREAST CANCER METASTATIC
     Dosage: 125 MG, DAILY
     Dates: start: 20160826, end: 20171130

REACTIONS (3)
  - Cancer pain [Unknown]
  - Neoplasm progression [Recovered/Resolved]
  - Neuralgia [Recovered/Resolved]

NARRATIVE: CASE EVENT DATE: 20171201
